FAERS Safety Report 9492206 (Version 1)
Quarter: 2013Q3

REPORT INFORMATION
  Report Type: Spontaneous
  Country: FR (occurrence: FR)
  Receive Date: 20130830
  Receipt Date: 20130830
  Transmission Date: 20140515
  Serious: Yes (Hospitalization)
  Sender: FDA-Public Use
  Company Number: FR-BAXTER-2013BAX033341

PATIENT
  Age: 77 Year
  Sex: Female

DRUGS (3)
  1. ENDOXAN 2000 MG, LYOPHILISAT POUR SOLUTION INJECTABLE [Suspect]
     Indication: BREAST CANCER
     Route: 042
     Dates: start: 20130228
  2. DOCETAXEL SANDOZ [Suspect]
     Indication: BREAST CANCER
     Route: 042
     Dates: start: 20130228
  3. CORTANCYL [Concomitant]
     Indication: PREMEDICATION
     Route: 065
     Dates: start: 20130227, end: 20130301

REACTIONS (4)
  - Febrile bone marrow aplasia [Recovered/Resolved]
  - Diarrhoea [Recovered/Resolved]
  - Abdominal pain upper [Recovered/Resolved]
  - Vulvovaginal mycotic infection [Recovered/Resolved]
